FAERS Safety Report 20501868 (Version 1)
Quarter: 2022Q1

REPORT INFORMATION
  Report Type: Spontaneous
  Country: FR (occurrence: FR)
  Receive Date: 20220222
  Receipt Date: 20220222
  Transmission Date: 20220423
  Serious: Yes (Other)
  Sender: FDA-Public Use
  Company Number: None

PATIENT
  Age: 18 Year
  Sex: Male

DRUGS (6)
  1. ALPRAZOLAM [Suspect]
     Active Substance: ALPRAZOLAM
     Indication: Product used for unknown indication
     Dosage: NOT KNOWN/2020
     Route: 048
     Dates: end: 2020
  2. LORAZEPAM [Suspect]
     Active Substance: LORAZEPAM
     Indication: Product used for unknown indication
     Dosage: NOT KNOWN,/2020
     Route: 048
     Dates: end: 2020
  3. CODEINE [Suspect]
     Active Substance: CODEINE
     Indication: Product used for unknown indication
     Dosage: NOT KNOWN,/2020
     Route: 048
     Dates: end: 2020
  4. MIDOMAFETAMINE [Suspect]
     Active Substance: MIDOMAFETAMINE
     Indication: Product used for unknown indication
     Dosage: NOT KNOWN/2020
     Route: 048
  5. CANNABIS SATIVA SUBSP. INDICA TOP [Suspect]
     Active Substance: CANNABIS SATIVA SUBSP. INDICA TOP
     Indication: Product used for unknown indication
     Dosage: SEVERAL TIMES A DAY/2018
     Route: 055
  6. ALCOHOL [Suspect]
     Active Substance: ALCOHOL
     Indication: Product used for unknown indication
     Dosage: UNK, QW (70 DRINKS A WEEK/2017)
     Route: 048

REACTIONS (11)
  - Hallucination [Recovered/Resolved]
  - Drug abuse [Not Recovered/Not Resolved]
  - Epistaxis [Recovered/Resolved]
  - Vision blurred [Recovered/Resolved]
  - Derealisation [Recovered/Resolved]
  - Vertigo [Recovered/Resolved]
  - Feeling of relaxation [Recovered/Resolved]
  - Euphoric mood [Recovered/Resolved]
  - Feeling hot [Recovered/Resolved]
  - Insomnia [Recovered/Resolved]
  - Memory impairment [Recovered/Resolved]

NARRATIVE: CASE EVENT DATE: 20180101
